FAERS Safety Report 5986359-2 (Version None)
Quarter: 2008Q4

REPORT INFORMATION
  Report Type: 
  Country: None (occurrence: None)
  Receive Date: 20081209
  Receipt Date: 20081128
  Transmission Date: 20090506
  Serious: Yes (Hospitalization)
  Sender: FDA-Public Use
  Company Number: JP-NOVOPROD-281642

PATIENT
  Age: 31 Year
  Sex: Female

DRUGS (1)
  1. NOVOLIN R [Suspect]
     Indication: TYPE 2 DIABETES MELLITUS

REACTIONS (3)
  - DIABETIC KETOACIDOSIS [None]
  - INTRA-UTERINE DEATH [None]
  - PANCREATITIS ACUTE [None]
